FAERS Safety Report 23227719 (Version 1)
Quarter: 2023Q4

REPORT INFORMATION
  Report Type: Spontaneous
  Country: FR (occurrence: None)
  Receive Date: 20231125
  Receipt Date: 20231125
  Transmission Date: 20240110
  Serious: Yes (Other)
  Sender: FDA-Public Use
  Company Number: FR-ROCHE-3463724

PATIENT
  Age: 42 Year
  Sex: Female

DRUGS (2)
  1. CELLCEPT [Suspect]
     Active Substance: MYCOPHENOLATE MOFETIL
     Indication: Retinal vasculitis
     Route: 048
     Dates: start: 2009
  2. ROFERON-A [Concomitant]
     Active Substance: INTERFERON ALFA-2A

REACTIONS (2)
  - Blindness unilateral [Unknown]
  - Off label use [Unknown]
